FAERS Safety Report 9316432 (Version 3)
Quarter: 2013Q2

REPORT INFORMATION
  Report Type: Report from Study
  Country: CA (occurrence: CA)
  Receive Date: 20130530
  Receipt Date: 20130611
  Transmission Date: 20140414
  Serious: Yes (Hospitalization)
  Sender: FDA-Public Use
  Company Number: CA-BAYER-2013-064583

PATIENT
  Age: 61 Year
  Sex: Female
  Weight: 40.3 kg

DRUGS (8)
  1. REGORAFENIB [Suspect]
     Indication: COLON CANCER
     Dosage: 160 MG, QD
     Route: 048
     Dates: start: 20130508, end: 20130516
  2. HYDROMORPHONE [Concomitant]
     Indication: BACK PAIN
     Dosage: 2MG
     Route: 048
     Dates: start: 201202
  3. LYRICA [Concomitant]
     Indication: BACK PAIN
     Dosage: 25MG
     Route: 048
     Dates: start: 201202
  4. PANTOLOC [Concomitant]
     Indication: DYSPEPSIA
     Dosage: 40MG
     Route: 048
     Dates: start: 201212
  5. AMLODIPINE [Concomitant]
     Indication: HYPERTENSION
     Dosage: 5MG
     Route: 048
     Dates: start: 20130321
  6. PREDNISONE [Concomitant]
     Indication: BACK PAIN
     Dosage: 45MG
     Route: 048
     Dates: start: 20130425
  7. REACTINE [CETIRIZINE] [Concomitant]
     Indication: RASH
     Dosage: 10MG
     Route: 048
     Dates: start: 20130520, end: 20130521
  8. TYLENOL [PARACETAMOL] [Concomitant]
     Indication: PYREXIA
     Dosage: 650MG
     Route: 048
     Dates: start: 20130520

REACTIONS (1)
  - Colitis [Recovered/Resolved]
